FAERS Safety Report 25772560 (Version 1)
Quarter: 2025Q3

REPORT INFORMATION
  Report Type: Spontaneous
  Country: VN (occurrence: VN)
  Receive Date: 20250908
  Receipt Date: 20250908
  Transmission Date: 20251020
  Serious: Yes (Death, Other)
  Sender: AMGEN
  Company Number: VN-AMGEN-VNMSP2025174698

PATIENT

DRUGS (14)
  1. FILGRASTIM [Suspect]
     Active Substance: FILGRASTIM
     Indication: Autologous haematopoietic stem cell transplant
     Dosage: 10 MICROGRAM/KILOGRAM, QD, FROM DAY 5
     Route: 065
  2. BUSULFAN [Concomitant]
     Active Substance: BUSULFAN
  3. CYCLOPHOSPHAMIDE [Concomitant]
     Active Substance: CYCLOPHOSPHAMIDE
  4. FLUDARABINE [Concomitant]
     Active Substance: FLUDARABINE PHOSPHATE
  5. MELPHALAN [Concomitant]
     Active Substance: MELPHALAN
  6. THIOTEPA [Concomitant]
     Active Substance: THIOTEPA
  7. ALEMTUZUMAB [Concomitant]
     Active Substance: ALEMTUZUMAB
  8. METHOTREXATE [Concomitant]
     Active Substance: METHOTREXATE
  9. MYCOPHENOLATE MOFETIL [Concomitant]
     Active Substance: MYCOPHENOLATE MOFETIL
  10. ACYCLOVIR [Concomitant]
     Active Substance: ACYCLOVIR
  11. COTRIMOXAZOLE [Concomitant]
     Active Substance: SULFAMETHOXAZOLE\TRIMETHOPRIM
  12. MICAFUNGIN [Concomitant]
     Active Substance: MICAFUNGIN SODIUM
  13. LETERMOVIR [Concomitant]
     Active Substance: LETERMOVIR
     Indication: Prophylaxis
  14. GANCICLOVIR [Concomitant]
     Active Substance: GANCICLOVIR
     Dosage: 5 MILLIGRAM/KILOGRAM, BID, FOLLOWED BY 5 MG/KG DAILY
     Route: 040

REACTIONS (3)
  - Chronic graft versus host disease [Fatal]
  - Acute graft versus host disease [Unknown]
  - Cytomegalovirus infection reactivation [Unknown]
